FAERS Safety Report 4347518-8 (Version None)
Quarter: 2004Q2

REPORT INFORMATION
  Report Type: 
  Country: None (occurrence: None)
  Receive Date: 20040421
  Receipt Date: 20040203
  Transmission Date: 20050107
  Serious: Yes (Other)
  Sender: FDA-Public Use
  Company Number: 2004007992

PATIENT
  Age: 13 Year
  Sex: Female
  Weight: 57.1532 kg

DRUGS (1)
  1. RELPAX [Suspect]
     Indication: MIGRAINE
     Dosage: 40 MG, ORAL
     Route: 048
     Dates: start: 20040123, end: 20040124

REACTIONS (2)
  - MEDICATION ERROR [None]
  - MIGRAINE [None]
